FAERS Safety Report 8059655-5 (Version None)
Quarter: 2012Q1

REPORT INFORMATION
  Report Type: 
  Country: None (occurrence: None)
  Receive Date: 20120119
  Receipt Date: 20120119
  Transmission Date: 20120608
  Serious: Yes (Hospitalization)
  Sender: FDA-Public Use
  Company Number: None

PATIENT
  Age: 50 Year
  Sex: Female
  Weight: 65.2 kg

DRUGS (6)
  1. METOPROLOL [Concomitant]
  2. CALCIUM [Concomitant]
  3. VITAMIN D [Concomitant]
  4. LISINOPRIL [Concomitant]
  5. ASPIRIN [Concomitant]
  6. VANCOMYCIN [Suspect]
     Indication: OSTEOMYELITIS
     Dosage: 1000MG ONCE IV RECENT 1250 MG Q12HR IV
     Route: 042

REACTIONS (5)
  - NEPHROPATHY TOXIC [None]
  - BLOOD CREATININE INCREASED [None]
  - DRUG LEVEL ABOVE THERAPEUTIC [None]
  - NASAL DISORDER [None]
  - ORAL DISORDER [None]
